FAERS Safety Report 14316618 (Version 3)
Quarter: 2018Q1

REPORT INFORMATION
  Report Type: Spontaneous
  Country: JP (occurrence: JP)
  Receive Date: 20171222
  Receipt Date: 20180103
  Transmission Date: 20180509
  Serious: Yes (Death, Hospitalization)
  Sender: FDA-Public Use
  Company Number: JP-ROCHE-2043975

PATIENT
  Age: 77 Year
  Sex: Female
  Weight: 66 kg

DRUGS (14)
  1. MIYA-BM [Concomitant]
     Active Substance: CLOSTRIDIUM BUTYRICUM SPORES STRAIN M-55
     Route: 048
     Dates: end: 20171129
  2. URSO [Concomitant]
     Active Substance: URSODIOL
     Route: 048
     Dates: end: 20171129
  3. MEDICON (DEXTROMETHORPHAN HYDROBROMIDE/POTASSIUM CRESOLSULFONATE) [Concomitant]
     Route: 048
     Dates: start: 20171125, end: 20171127
  4. KADCYLA [Suspect]
     Active Substance: ADO-TRASTUZUMAB EMTANSINE
     Route: 042
     Dates: end: 2017
  5. AVELOX [Concomitant]
     Active Substance: MOXIFLOXACIN HYDROCHLORIDE
     Route: 048
     Dates: start: 20171125, end: 20171127
  6. OLMETEC [Concomitant]
     Active Substance: OLMESARTAN MEDOXOMIL
     Route: 048
     Dates: end: 20171129
  7. MEVALOTIN [Concomitant]
     Active Substance: PRAVASTATIN SODIUM
     Route: 048
     Dates: end: 20171129
  8. SENEGA [Concomitant]
     Route: 048
     Dates: start: 20171125, end: 20171127
  9. SALIPARA [Concomitant]
     Route: 048
     Dates: start: 20171125, end: 20171127
  10. KADCYLA [Suspect]
     Active Substance: ADO-TRASTUZUMAB EMTANSINE
     Route: 042
     Dates: start: 2017, end: 20171120
  11. MUCOSOLVAN L [Concomitant]
     Active Substance: AMBROXOL HYDROCHLORIDE
     Route: 048
     Dates: start: 20171125, end: 20171127
  12. MYSLEE [Concomitant]
     Active Substance: ZOLPIDEM TARTRATE
     Dosage: WHEN YOU CAN^T SLEEP
     Route: 048
     Dates: start: 20171125, end: 20171127
  13. KADCYLA [Suspect]
     Active Substance: ADO-TRASTUZUMAB EMTANSINE
     Indication: BREAST CANCER
     Dosage: TREATMENT LINE: 2ND LINE?TREATMENT CYCLE OF THIS MEDICINE NUMBER: 3 OR MORE
     Route: 041
     Dates: start: 20161114
  14. OMEPRAL [Concomitant]
     Active Substance: OMEPRAZOLE
     Route: 048
     Dates: end: 20171129

REACTIONS (1)
  - Interstitial lung disease [Fatal]

NARRATIVE: CASE EVENT DATE: 20171127
